FAERS Safety Report 7128360-1 (Version None)
Quarter: 2010Q4

REPORT INFORMATION
  Report Type: 
  Country: None (occurrence: None)
  Receive Date: 20101130
  Receipt Date: 20101116
  Transmission Date: 20110411
  Serious: Yes (Other)
  Sender: FDA-Public Use
  Company Number: PHHY2010US64464

PATIENT
  Age: 11 Year
  Sex: Female

DRUGS (2)
  1. ILARIS [Suspect]
     Dosage: UNK
     Route: 058
  2. STEROIDS NOS [Concomitant]

REACTIONS (2)
  - PAPILLOEDEMA [None]
  - SCOTOMA [None]
